FAERS Safety Report 5725998-0 (Version None)
Quarter: 2008Q2

REPORT INFORMATION
  Report Type: 
  Country: None (occurrence: None)
  Receive Date: 20080502
  Receipt Date: 20080422
  Transmission Date: 20081010
  Serious: Yes (Other)
  Sender: FDA-Public Use
  Company Number: US-JNJFOC-20080406141

PATIENT
  Sex: Female
  Weight: 63.5 kg

DRUGS (6)
  1. REMICADE [Suspect]
     Indication: CROHN'S DISEASE
     Route: 042
  2. PREVACID [Concomitant]
     Indication: CROHN'S DISEASE
  3. PROPRANOLOL [Concomitant]
     Indication: TREMOR
  4. ZOLOFT [Concomitant]
     Indication: DEPRESSION
  5. ZANTAC [Concomitant]
     Indication: URTICARIA
  6. BENEDRYL [Concomitant]
     Indication: RASH

REACTIONS (10)
  - ARTHRALGIA [None]
  - CONVULSION [None]
  - DYSPNOEA [None]
  - FEELING ABNORMAL [None]
  - HEADACHE [None]
  - MYALGIA [None]
  - PHARYNGOLARYNGEAL PAIN [None]
  - RASH [None]
  - SWELLING FACE [None]
  - URTICARIA [None]
